FAERS Safety Report 8305960 (Version 3)
Quarter: 2014Q2

REPORT INFORMATION
  Report Type: Report from Study
  Country: BR (occurrence: BR)
  Receive Date: 20111221
  Receipt Date: 20140612
  Transmission Date: 20141212
  Serious: Yes (Other)
  Sender: FDA-Public Use
  Company Number: BR-ROCHE-760390

PATIENT
  Age: 60 Year
  Sex: Female
  Weight: 65 kg

DRUGS (8)
  1. MABTHERA [Suspect]
     Indication: RHEUMATOID ARTHRITIS
     Dosage: FORM: INFUSION
     Route: 042
     Dates: start: 20090925, end: 20091009
  2. MABTHERA [Suspect]
     Route: 042
  3. OMEPRAZOLE [Concomitant]
  4. METICORTEN [Concomitant]
  5. METHOTREXATE [Concomitant]
  6. VERAPAMIL [Concomitant]
  7. PREDNISONE [Concomitant]
  8. ALENDRONATE [Concomitant]

REACTIONS (9)
  - Weight increased [Not Recovered/Not Resolved]
  - Conjunctivitis [Recovering/Resolving]
  - Labyrinthitis [Recovered/Resolved]
  - Paraesthesia [Unknown]
  - Diabetes mellitus [Not Recovered/Not Resolved]
  - Urinary tract infection [Not Recovered/Not Resolved]
  - Formication [Not Recovered/Not Resolved]
  - Insomnia [Not Recovered/Not Resolved]
  - Tremor [Not Recovered/Not Resolved]
